FAERS Safety Report 7374815-4 (Version None)
Quarter: 2011Q1

REPORT INFORMATION
  Report Type: 
  Country: None (occurrence: None)
  Receive Date: 20110325
  Receipt Date: 20101221
  Transmission Date: 20110831
  Serious: No
  Sender: FDA-Public Use
  Company Number: US-MYLANLABS-2010S1023579

PATIENT
  Age: 45 Year
  Sex: Female

DRUGS (9)
  1. PROZAC [Concomitant]
  2. WELLBUTRIN [Concomitant]
  3. ALLEGRA [Concomitant]
  4. LORAZEPAM [Concomitant]
  5. IBUPROFEN [Concomitant]
  6. FENTANYL-100 [Suspect]
     Indication: PAIN
     Dosage: CHANGED Q72H
     Route: 062
     Dates: start: 20090101
  7. SUDAFED 12 HOUR [Concomitant]
  8. TRAZODONE [Concomitant]
  9. DIURETIC [Concomitant]

REACTIONS (1)
  - DRUG SCREEN FALSE POSITIVE [None]
